FAERS Safety Report 19871319 (Version 2)
Quarter: 2021Q4

REPORT INFORMATION
  Report Type: Report from Study
  Country: None (occurrence: US)
  Receive Date: 20210923
  Receipt Date: 20211001
  Transmission Date: 20220303
  Serious: Yes (Other)
  Sender: FDA-Public Use
  Company Number: US-ABBVIE-21K-163-4088000-00

PATIENT
  Sex: Female
  Weight: 46.31 kg

DRUGS (3)
  1. HUMIRA [Suspect]
     Active Substance: ADALIMUMAB
     Indication: Colitis ulcerative
     Dosage: CITRATE FREE
     Route: 058
     Dates: start: 2011
  2. MODERNA COVID-19 VACCINE [Concomitant]
     Active Substance: CX-024414
     Indication: COVID-19 immunisation
     Dosage: DOSE1
     Route: 030
     Dates: start: 20210326, end: 20210326
  3. MODERNA COVID-19 VACCINE [Concomitant]
     Active Substance: CX-024414
     Dosage: DOSE2
     Route: 030
     Dates: start: 20210429, end: 20210429

REACTIONS (5)
  - Systemic lupus erythematosus [Unknown]
  - Osteoarthritis [Unknown]
  - Visual impairment [Not Recovered/Not Resolved]
  - Rheumatoid arthritis [Unknown]
  - Headache [Not Recovered/Not Resolved]
